FAERS Safety Report 16656433 (Version 1)
Quarter: 2019Q3

REPORT INFORMATION
  Report Type: Spontaneous
  Country: DE (occurrence: DE)
  Receive Date: 20190801
  Receipt Date: 20190801
  Transmission Date: 20191004
  Serious: Yes (Other)
  Sender: FDA-Public Use
  Company Number: DE-BAYER-2019-138465

PATIENT
  Age: 36 Year
  Sex: Female
  Weight: 66 kg

DRUGS (1)
  1. KYLEENA [Suspect]
     Active Substance: LEVONORGESTREL

REACTIONS (11)
  - Infection susceptibility increased [Unknown]
  - Acne [Unknown]
  - Headache [Unknown]
  - Abdominal pain [Unknown]
  - Vaginal haemorrhage [Unknown]
  - Alopecia [Unknown]
  - Mood swings [Unknown]
  - Abdominal pain lower [Unknown]
  - Weight increased [Unknown]
  - Seborrhoea [Unknown]
  - Hypovitaminosis [Unknown]

NARRATIVE: CASE EVENT DATE: 20181010
